FAERS Safety Report 15902066 (Version 2)
Quarter: 2019Q1

REPORT INFORMATION
  Report Type: Not Available
  Country: US (occurrence: US)
  Receive Date: 20190201
  Receipt Date: 20190214
  Transmission Date: 20190417
  Serious: Yes (Death, Other)
  Sender: FDA-Public Use
  Company Number: US-NEUROCRINE BIOSCIENCES INC.-2019NBI00295

PATIENT
  Age: 58 Year
  Sex: Male

DRUGS (18)
  1. GABAPENTIN. [Concomitant]
     Active Substance: GABAPENTIN
  2. INSULIN [Concomitant]
     Active Substance: INSULIN NOS
  3. ALBUTEROL. [Concomitant]
     Active Substance: ALBUTEROL
     Dosage: INHALER
  4. MELOXICAM. [Concomitant]
     Active Substance: MELOXICAM
  5. SERTRALINE [Concomitant]
     Active Substance: SERTRALINE HYDROCHLORIDE
     Indication: INSOMNIA
  6. INGREZZA [Suspect]
     Active Substance: VALBENAZINE
     Indication: TARDIVE DYSKINESIA
     Route: 048
     Dates: start: 20180424, end: 20181229
  7. CARVEDILOL. [Concomitant]
     Active Substance: CARVEDILOL
  8. MORPHINE [Concomitant]
     Active Substance: MORPHINE
  9. PRAMIPEXOLE. [Concomitant]
     Active Substance: PRAMIPEXOLE
  10. LYRICA [Concomitant]
     Active Substance: PREGABALIN
  11. ATORVASTATIN [Concomitant]
     Active Substance: ATORVASTATIN
  12. PLAVIX [Concomitant]
     Active Substance: CLOPIDOGREL BISULFATE
  13. ADVAIR HFA [Concomitant]
     Active Substance: FLUTICASONE PROPIONATE\SALMETEROL XINAFOATE
  14. QUETIAPINE. [Suspect]
     Active Substance: QUETIAPINE
     Indication: ABNORMAL BEHAVIOUR
     Dosage: 200/200/100
  15. VITAMIN D [Concomitant]
     Active Substance: CHOLECALCIFEROL
  16. ISOSORBIDE MONONITRATE. [Concomitant]
     Active Substance: ISOSORBIDE MONONITRATE
  17. VESICARE [Concomitant]
     Active Substance: SOLIFENACIN SUCCINATE
  18. ASA [Concomitant]
     Active Substance: ASPIRIN

REACTIONS (7)
  - Death [Fatal]
  - Dyskinesia [Unknown]
  - Seizure [Unknown]
  - Fatigue [Unknown]
  - Ankle fracture [Unknown]
  - Irritability [Unknown]
  - Insomnia [Unknown]

NARRATIVE: CASE EVENT DATE: 20181229
